FAERS Safety Report 19498223 (Version 1)
Quarter: 2021Q3

REPORT INFORMATION
  Report Type: Spontaneous
  Country: GB (occurrence: GB)
  Receive Date: 20210706
  Receipt Date: 20210706
  Transmission Date: 20211014
  Serious: Yes (Life-Threatening, Hospitalization, Disabling, Other)
  Sender: FDA-Public Use
  Company Number: GB-TEVA-2021-GB-1929496

PATIENT
  Age: 65 Year
  Sex: Female
  Weight: 56 kg

DRUGS (5)
  1. AUBAGIO [Concomitant]
     Active Substance: TERIFLUNOMIDE
     Indication: MULTIPLE SCLEROSIS
     Dates: start: 20180718
  2. WARFARIN [Suspect]
     Active Substance: WARFARIN
     Route: 065
  3. CARBAMAZEPIN [Concomitant]
     Active Substance: CARBAMAZEPINE
     Indication: TRIGEMINAL NEURALGIA
     Dates: start: 20190823
  4. FRAGMIN [Suspect]
     Active Substance: DALTEPARIN SODIUM
     Route: 065
  5. BACLOFEN. [Concomitant]
     Active Substance: BACLOFEN
     Indication: MULTIPLE SCLEROSIS
     Dates: start: 20170120

REACTIONS (5)
  - Cardiac disorder [Unknown]
  - Dyspnoea [Unknown]
  - Pulmonary embolism [Recovering/Resolving]
  - Activated partial thromboplastin time prolonged [Unknown]
  - Dyspnoea exertional [Unknown]

NARRATIVE: CASE EVENT DATE: 20210301
